FAERS Safety Report 10526370 (Version 3)
Quarter: 2014Q4

REPORT INFORMATION
  Report Type: Report from Study
  Country: CA (occurrence: CA)
  Receive Date: 20141019
  Receipt Date: 20141112
  Transmission Date: 20150528
  Serious: Yes (Death, Hospitalization)
  Sender: FDA-Public Use
  Company Number: CA-BRISTOL-MYERS SQUIBB COMPANY-16262701

PATIENT
  Age: 80 Year
  Sex: Female

DRUGS (10)
  1. CALCIUM [Concomitant]
     Active Substance: CALCIUM
     Dates: start: 20020625, end: 20111124
  2. LUTEIN [Concomitant]
     Active Substance: LUTEIN
     Dates: start: 20111003, end: 20111124
  3. ABATACEPT [Suspect]
     Active Substance: ABATACEPT
     Indication: RHEUMATOID ARTHRITIS
     Dosage: ALSO TAKEN 125MG PER WEEK
     Route: 058
     Dates: start: 20090305, end: 20111124
  4. ACETAMINOPHEN. [Concomitant]
     Active Substance: ACETAMINOPHEN
     Dates: start: 20100910, end: 20111124
  5. TYLENOL WITH CODEINE [Concomitant]
     Active Substance: ACETAMINOPHEN\CODEINE PHOSPHATE
     Dates: start: 20100910, end: 20111124
  6. FOLIC ACID. [Concomitant]
     Active Substance: FOLIC ACID
     Dates: start: 20110612, end: 20111124
  7. METHOTREXATE [Suspect]
     Active Substance: METHOTREXATE
     Route: 048
     Dates: start: 20110803, end: 20111124
  8. VITAMIN D [Concomitant]
     Active Substance: CHOLECALCIFEROL
     Dates: start: 20100820, end: 20111124
  9. CELEBREX [Concomitant]
     Active Substance: CELECOXIB
     Dates: start: 20100716, end: 20111126
  10. HYDROXYCHLOROQUINE [Concomitant]
     Active Substance: HYDROXYCHLOROQUINE
     Dates: start: 20100716, end: 20111126

REACTIONS (6)
  - Acute kidney injury [Fatal]
  - Metabolic acidosis [Fatal]
  - Urosepsis [Fatal]
  - Gastrointestinal ischaemia [Fatal]
  - Myocardial infarction [Fatal]
  - Dehydration [Unknown]

NARRATIVE: CASE EVENT DATE: 20111124
